FAERS Safety Report 8808926 (Version 1)
Quarter: 2012Q4

REPORT INFORMATION
  Report Type: 
  Country: CN (occurrence: CN)
  Receive Date: 20120926
  Receipt Date: 20120926
  Transmission Date: 20130627
  Serious: Yes (Disabling, Other)
  Sender: FDA-Public Use
  Company Number: CN-ASTELLAS-2012US007996

PATIENT
  Age: 72 Year
  Sex: Female

DRUGS (1)
  1. TARCEVA [Suspect]
     Indication: ADENOCARCINOMA
     Dosage: 150 mg, UID/QD
     Route: 048
     Dates: start: 201205

REACTIONS (6)
  - Drug ineffective [Unknown]
  - Pleuritic pain [Not Recovered/Not Resolved]
  - Abasia [Unknown]
  - Hypoaesthesia [Not Recovered/Not Resolved]
  - Asthenia [Not Recovered/Not Resolved]
  - Decreased appetite [Not Recovered/Not Resolved]
